FAERS Safety Report 4838328-3 (Version None)
Quarter: 2005Q4

REPORT INFORMATION
  Report Type: 
  Country: None (occurrence: None)
  Receive Date: 20051123
  Receipt Date: 20051114
  Transmission Date: 20060501
  Serious: Yes (Hospitalization)
  Sender: FDA-Public Use
  Company Number: 12870

PATIENT
  Age: 75 Year
  Sex: Male

DRUGS (10)
  1. AMIODARONE [Suspect]
     Indication: ATRIAL FIBRILLATION
     Dosage: 2 TABLET(S) DAILY PO
     Route: 048
  2. DIGOXIN [Concomitant]
  3. RAMIPRIL [Concomitant]
  4. METFORMIN [Concomitant]
  5. ATORVASTATIN [Concomitant]
  6. BISOPROLOL [Concomitant]
  7. OMEPRAZOLE [Concomitant]
  8. GLICLAZIDE [Concomitant]
  9. ADCAL-D3 [Concomitant]
  10. WARFARIN [Concomitant]

REACTIONS (7)
  - ANAEMIA [None]
  - DIARRHOEA [None]
  - HYPERTHYROIDISM [None]
  - HYPOGLYCAEMIA [None]
  - SMALL INTESTINE CARCINOMA [None]
  - VOMITING [None]
  - WEIGHT DECREASED [None]
